FAERS Safety Report 8809206 (Version 1)
Quarter: 2012Q4

REPORT INFORMATION
  Report Type: Spontaneous
  Country: US (occurrence: None)
  Receive Date: 20120921
  Receipt Date: 20120921
  Transmission Date: 20130627
  Serious: Yes (Death)
  Sender: FDA-Public Use
  Company Number: None

PATIENT
  Age: 55 Year
  Sex: Female
  Weight: 79.4 kg

DRUGS (2)
  1. NIMODIPINE [Suspect]
     Indication: VASOSPASM
     Dosage: 60 mg every 4 hours nasogastric tube
     Route: 048
     Dates: start: 20120518, end: 20120524
  2. NIMODIPINE [Suspect]
     Indication: PROPHYLAXIS
     Dosage: 60 mg every 4 hours nasogastric tube
     Route: 048
     Dates: start: 20120518, end: 20120524

REACTIONS (3)
  - Incorrect route of drug administration [None]
  - Bradycardia [None]
  - Cardiac arrest [None]
